FAERS Safety Report 8901428 (Version 1)
Quarter: 2012Q4

REPORT INFORMATION
  Report Type: Report from Study
  Country: CA (occurrence: CA)
  Receive Date: 20121109
  Receipt Date: 20121109
  Transmission Date: 20130627
  Serious: Yes (Other)
  Sender: FDA-Public Use
  Company Number: CA-JNJFOC-20121017551

PATIENT
  Age: 47 None
  Sex: Female
  Weight: 37.92 kg

DRUGS (1)
  1. REMICADE [Suspect]
     Indication: PSORIASIS
     Dosage: therapy duration 8 months
     Route: 042
     Dates: start: 20121001

REACTIONS (2)
  - Mammoplasty [Not Recovered/Not Resolved]
  - Post procedural infection [Not Recovered/Not Resolved]
